FAERS Safety Report 8989065 (Version 1)
Quarter: 2012Q4

REPORT INFORMATION
  Report Type: Spontaneous
  Country: IT (occurrence: None)
  Receive Date: 20121219
  Receipt Date: 20121219
  Transmission Date: 20130627
  Serious: Yes (Hospitalization)
  Sender: FDA-Public Use
  Company Number: DSA_61432_2012

PATIENT
  Age: 32 Year
  Sex: Female

DRUGS (4)
  1. WELLBUTRIN [Suspect]
     Dosage: (DF)
     Dates: start: 20121128, end: 20121128
  2. LAMICTAL [Suspect]
     Dosage: (DF)
     Dates: start: 20121128, end: 20121128
  3. CHLORPROMAZINE [Suspect]
     Dosage: (DF)
     Route: 048
     Dates: start: 20121128, end: 20121128
  4. ALPRAZOLAM (ALPRAZOLAM) [Suspect]
     Dosage: (DF)
     Dates: start: 20121128, end: 20121128

REACTIONS (2)
  - Suicide attempt [None]
  - Psychomotor skills impaired [None]
